FAERS Safety Report 8465968 (Version 8)
Quarter: 2013Q1

REPORT INFORMATION
  Report Type: Spontaneous
  Country: US (occurrence: US)
  Receive Date: 20120319
  Receipt Date: 20130214
  Transmission Date: 20140127
  Serious: Yes (Hospitalization, Other)
  Sender: FDA-Public Use
  Company Number: US-009507513-1203USA01854

PATIENT
  Sex: Female
  Weight: 67.12 kg

DRUGS (4)
  1. FOSAMAX [Suspect]
     Indication: OSTEOPOROSIS
     Dosage: 10 MG, QD
     Route: 048
     Dates: start: 199904, end: 201004
  2. FOSAMAX [Suspect]
     Dosage: 70 MG, QW
     Route: 048
     Dates: end: 201004
  3. FOSAMAX PLUS D [Suspect]
     Indication: OSTEOPOROSIS
     Route: 048
  4. ALENDRONATE SODIUM [Suspect]
     Dosage: 70 MG, UNK
     Route: 048

REACTIONS (47)
  - Open reduction of fracture [Unknown]
  - Femur fracture [Unknown]
  - Anaemia postoperative [Recovering/Resolving]
  - Retinal vein occlusion [Unknown]
  - Osteonecrosis [Unknown]
  - Rib fracture [Unknown]
  - Joint dislocation [Unknown]
  - Asthma [Unknown]
  - Asthma [Unknown]
  - Femur fracture [Unknown]
  - Knee arthroplasty [Unknown]
  - Femur fracture [Unknown]
  - Fall [Unknown]
  - Urinary tract infection [Unknown]
  - Adverse event [Unknown]
  - Hypertension [Unknown]
  - Tendon disorder [Unknown]
  - Vulval polyp [Unknown]
  - Bursitis [Unknown]
  - Intervertebral disc degeneration [Unknown]
  - Intervertebral disc protrusion [Unknown]
  - Osteoarthritis [Unknown]
  - Sensation of heaviness [Unknown]
  - Hypercholesterolaemia [Unknown]
  - Open angle glaucoma [Unknown]
  - Spinal osteoarthritis [Unknown]
  - Rib fracture [Unknown]
  - Tendon disorder [Unknown]
  - Osteoarthritis [Unknown]
  - Impaired healing [Unknown]
  - Pain in extremity [Unknown]
  - Arthralgia [Unknown]
  - Back pain [Unknown]
  - Limb discomfort [Unknown]
  - Ligament sprain [Unknown]
  - Spinal osteoarthritis [Unknown]
  - Joint effusion [Unknown]
  - Osteoarthritis [Unknown]
  - Bone marrow oedema [Unknown]
  - Femoral neck fracture [Unknown]
  - Bone cyst [Unknown]
  - Renal cyst [Unknown]
  - Diverticulum [Unknown]
  - Ovarian cyst [Unknown]
  - Fallopian tube disorder [Unknown]
  - Scoliosis [Unknown]
  - Intervertebral disc space narrowing [Unknown]
